FAERS Safety Report 5725321-1 (Version None)
Quarter: 2008Q2

REPORT INFORMATION
  Report Type: 
  Country: None (occurrence: None)
  Receive Date: 20080501
  Receipt Date: 20080421
  Transmission Date: 20081010
  Serious: Yes (Other)
  Sender: FDA-Public Use
  Company Number: US-PFIZER INC-2008022351

PATIENT
  Sex: Female
  Weight: 129.7 kg

DRUGS (3)
  1. DETROL LA [Suspect]
     Indication: HYPERTONIC BLADDER
     Route: 048
  2. ALEVE [Concomitant]
  3. METHYLSULFONYLMETHANE [Concomitant]
     Indication: ARTHRITIS

REACTIONS (5)
  - ABNORMAL SENSATION IN EYE [None]
  - AURICULAR SWELLING [None]
  - ERYTHEMA [None]
  - HEADACHE [None]
  - SWELLING FACE [None]
